FAERS Safety Report 26072286 (Version 1)
Quarter: 2025Q4

REPORT INFORMATION
  Report Type: Spontaneous
  Country: US (occurrence: US)
  Receive Date: 20251120
  Receipt Date: 20251120
  Transmission Date: 20260119
  Serious: Yes (Other)
  Sender: GE HEALTHCARE
  Company Number: US-GE HEALTHCARE-2025CSU015977

PATIENT
  Age: 64 Year
  Sex: Female
  Weight: 53.5 kg

DRUGS (3)
  1. MYOVIEW [Suspect]
     Active Substance: TECHNETIUM TC-99M TETROFOSMIN
     Indication: Cardiac stress test
     Dosage: 340.4 MBQ, TOTAL
     Route: 042
     Dates: start: 20251106
  2. MYOVIEW [Suspect]
     Active Substance: TECHNETIUM TC-99M TETROFOSMIN
     Dosage: 999 MBQ, TOTAL
     Route: 042
     Dates: start: 20251106
  3. TECHNETIUM TC-99M [Concomitant]
     Active Substance: TECHNETIUM TC-99M
     Indication: Cardiac stress test
     Dosage: UNK
     Dates: start: 20251106, end: 20251106

REACTIONS (4)
  - Tongue discolouration [Recovering/Resolving]
  - Dysgeusia [Recovering/Resolving]
  - Blister [Recovering/Resolving]
  - Pruritus [Recovering/Resolving]

NARRATIVE: CASE EVENT DATE: 20251106
